FAERS Safety Report 5906946-7 (Version None)
Quarter: 2008Q4

REPORT INFORMATION
  Report Type: 
  Country: None (occurrence: None)
  Receive Date: 20081003
  Receipt Date: 20081001
  Transmission Date: 20090506
  Serious: Yes (Other)
  Sender: FDA-Public Use
  Company Number: GB-WYE-G01611908

PATIENT
  Age: 29 Year
  Sex: Female
  Weight: 55.7 kg

DRUGS (7)
  1. PIPERACILLIN AND TAZOBACTAM [Suspect]
     Indication: SEPSIS
     Dosage: 4.5 G FREQUENCY UNKNOWN
     Route: 042
     Dates: start: 20080417, end: 20080505
  2. FERROUS SULFATE [Concomitant]
     Route: 048
  3. PENTASA [Concomitant]
     Indication: CROHN'S DISEASE
     Route: 048
  4. OMEPRAZOLE [Concomitant]
     Route: 048
  5. ACETAMINOPHEN [Concomitant]
     Route: 048
  6. ENOXAPARIN SODIUM [Concomitant]
     Dosage: 40 MG FREQUENCY UNKNOWN
     Route: 058
     Dates: end: 20080505
  7. LAMOTRIGINE [Concomitant]
     Indication: EPILEPSY
     Route: 048

REACTIONS (4)
  - CHEST DISCOMFORT [None]
  - MUSCLE SPASMS [None]
  - NEUTROPENIC SEPSIS [None]
  - THROMBOCYTOPENIA [None]
